FAERS Safety Report 26006661 (Version 2)
Quarter: 2025Q4

REPORT INFORMATION
  Report Type: Spontaneous
  Country: EU (occurrence: EU)
  Receive Date: 20251106
  Receipt Date: 20251112
  Transmission Date: 20260118
  Serious: Yes (Death, Life-Threatening, Other)
  Sender: SANOFI AVENTIS
  Company Number: None

PATIENT
  Age: 58 Year
  Sex: Male

DRUGS (5)
  1. TAMSULOSIN HYDROCHLORIDE [Suspect]
     Active Substance: TAMSULOSIN HYDROCHLORIDE
     Indication: Poisoning deliberate
     Dosage: 3.2 MG, TOTAL
     Route: 048
     Dates: start: 20250821
  2. ZOPICLONE [Suspect]
     Active Substance: ZOPICLONE
     Indication: Poisoning deliberate
     Dosage: 420 MG, TOTAL
     Route: 048
     Dates: start: 20250821
  3. ALPRAZOLAM [Suspect]
     Active Substance: ALPRAZOLAM
     Indication: Poisoning deliberate
     Dosage: 15 MG, TOTAL
     Route: 048
     Dates: start: 20250821
  4. BROMAZEPAM [Suspect]
     Active Substance: BROMAZEPAM
     Indication: Poisoning deliberate
     Dosage: 360 MG, TOTAL
     Route: 048
     Dates: start: 20250821
  5. LORAZEPAM [Suspect]
     Active Substance: LORAZEPAM
     Indication: Poisoning deliberate
     Dosage: 150 MG, TOTAL
     Route: 048
     Dates: start: 20250821

REACTIONS (3)
  - Poisoning deliberate [Recovered/Resolved]
  - Depressed level of consciousness [Recovered/Resolved]
  - Death [Fatal]

NARRATIVE: CASE EVENT DATE: 20250821
